FAERS Safety Report 7764814-2 (Version None)
Quarter: 2011Q3

REPORT INFORMATION
  Report Type: 
  Country: None (occurrence: None)
  Receive Date: 20110920
  Receipt Date: 20110920
  Transmission Date: 20111222
  Serious: No
  Sender: FDA-Public Use
  Company Number: None

PATIENT
  Age: 28 Year
  Sex: Male
  Weight: 66.4 kg

DRUGS (2)
  1. LURASIDONE HYDROCHLORIDE [Suspect]
     Indication: BIPOLAR I DISORDER
  2. LURASIDONE HYDROCHLORIDE [Suspect]
     Indication: ANXIETY

REACTIONS (3)
  - SWOLLEN TONGUE [None]
  - DYSPNOEA [None]
  - MUSCLE SPASMS [None]
